FAERS Safety Report 4531688-2 (Version None)
Quarter: 2004Q4

REPORT INFORMATION
  Report Type: 
  Country: None (occurrence: None)
  Receive Date: 20041220
  Receipt Date: 20041209
  Transmission Date: 20050328
  Serious: Yes (Other)
  Sender: FDA-Public Use
  Company Number: JP-ABBOTT-04P-087-0282723-00

PATIENT
  Age: 4 Year
  Sex: Male
  Weight: 12 kg

DRUGS (6)
  1. SEVOFLURANE [Suspect]
     Indication: ANAESTHESIA
     Route: 055
  2. NITROUS OXIDE [Concomitant]
     Indication: ANAESTHESIA
     Route: 055
  3. VECURONIUM [Concomitant]
     Indication: DRUG USE FOR UNKNOWN INDICATION
     Route: 065
  4. FENTANYL CITRATE [Concomitant]
     Indication: DRUG USE FOR UNKNOWN INDICATION
     Route: 065
  5. OLPRINONE [Concomitant]
     Indication: DRUG USE FOR UNKNOWN INDICATION
     Route: 065
  6. OXYGEN [Concomitant]
     Indication: DRUG USE FOR UNKNOWN INDICATION

REACTIONS (4)
  - BRADYCARDIA [None]
  - CARDIAC ARREST [None]
  - LARYNGOSPASM [None]
  - RESPIRATORY ARREST [None]
